FAERS Safety Report 9643874 (Version 1)
Quarter: 2013Q4

REPORT INFORMATION
  Report Type: Spontaneous
  Country: US (occurrence: US)
  Receive Date: 20131024
  Receipt Date: 20131024
  Transmission Date: 20140711
  Serious: No
  Sender: FDA-Public Use
  Company Number: US-ASTRAZENECA-2013SE74196

PATIENT
  Age: 68 Year
  Sex: Female
  Weight: 90.7 kg

DRUGS (14)
  1. OMEPRAZOLE [Suspect]
     Indication: BLOOD CHOLESTEROL INCREASED
     Route: 048
     Dates: start: 201301
  2. CRESTOR [Suspect]
     Indication: MYOCARDIAL INFARCTION
     Route: 048
     Dates: start: 201301, end: 201307
  3. CRESTOR [Suspect]
     Indication: BLOOD CHOLESTEROL INCREASED
     Route: 048
     Dates: start: 201301, end: 201307
  4. CRESTOR [Suspect]
     Indication: MYOCARDIAL INFARCTION
     Route: 048
     Dates: start: 201307
  5. CRESTOR [Suspect]
     Indication: BLOOD CHOLESTEROL INCREASED
     Route: 048
     Dates: start: 201307
  6. CRESTOR [Suspect]
     Indication: MYOCARDIAL INFARCTION
     Dosage: CUT 10MG TABLET IN HALF
     Route: 048
  7. CRESTOR [Suspect]
     Indication: BLOOD CHOLESTEROL INCREASED
     Dosage: CUT 10MG TABLET IN HALF
     Route: 048
  8. LIPITOR [Concomitant]
  9. CARVEDILOL [Concomitant]
     Indication: CARDIAC FAILURE
  10. CARVEDILOL [Concomitant]
     Indication: HYPERTENSION
  11. LOSARTAN HCTZ [Concomitant]
     Indication: BLOOD PRESSURE ABNORMAL
  12. CLOPIDOGREL [Concomitant]
     Indication: ANTICOAGULANT THERAPY
  13. PAROXITINE [Concomitant]
     Indication: DEPRESSION
  14. ASPIRIN [Concomitant]

REACTIONS (3)
  - Blood cholesterol increased [Not Recovered/Not Resolved]
  - Weight decreased [Unknown]
  - Off label use [Unknown]
